FAERS Safety Report 7866445-2 (Version None)
Quarter: 2011Q4

REPORT INFORMATION
  Report Type: 
  Country: None (occurrence: None)
  Receive Date: 20111028
  Receipt Date: 20110617
  Transmission Date: 20120403
  Serious: No
  Sender: FDA-Public Use
  Company Number: US-GLAXOSMITHKLINE-A0931884A

PATIENT
  Age: 68 Year
  Sex: Female

DRUGS (9)
  1. VENTOLIN [Suspect]
     Indication: ASTHMA
     Dosage: 2PUFF AS REQUIRED
     Route: 055
  2. CARISOPRODOL [Concomitant]
  3. OYSTER SHELL CALCIUM [Concomitant]
  4. VITAMIN D [Concomitant]
  5. FOLIC ACID [Concomitant]
  6. UNKNOWN MEDICATION [Concomitant]
  7. VITAMIN B6 [Concomitant]
  8. METHOTREXATE [Concomitant]
  9. ADVAIR DISKUS 100/50 [Suspect]
     Indication: CHRONIC OBSTRUCTIVE PULMONARY DISEASE
     Dosage: 1PUFF TWICE PER DAY
     Route: 055
     Dates: start: 20050601

REACTIONS (4)
  - ASTHENIA [None]
  - NAUSEA [None]
  - PYREXIA [None]
  - DIZZINESS [None]
